FAERS Safety Report 7530839-5 (Version None)
Quarter: 2011Q2

REPORT INFORMATION
  Report Type: 
  Country: None (occurrence: None)
  Receive Date: 20110607
  Receipt Date: 20110525
  Transmission Date: 20111010
  Serious: Yes (Other)
  Sender: FDA-Public Use
  Company Number: FR-MYLANLABS-2011S1011149

PATIENT
  Age: 51 Year
  Sex: Female

DRUGS (7)
  1. EUGYNON                            /00022701/ [Concomitant]
     Route: 065
  2. OMEPRAZOLE [Interacting]
     Indication: GASTROINTESTINAL DISORDER
     Dosage: 20 MG/DAY
     Route: 065
     Dates: end: 20100428
  3. CLOZAPINE [Suspect]
     Indication: PSYCHOTIC DISORDER
     Route: 065
     Dates: start: 20051101
  4. AMOXI-CLAVULANICO [Concomitant]
     Indication: PROPHYLAXIS
     Route: 065
     Dates: start: 20100429, end: 20100506
  5. CYAMEMAZINE [Concomitant]
     Dosage: 50 MG/DAY
     Route: 065
  6. FLUTICASONE PROPIONATE W/SALMETEROL [Concomitant]
     Dosage: FLUTICASONE PROPIONATE/SALMETEROL (125MG/25MG ONE TO FOUR TIMES A DAY)
     Route: 065
  7. ESOMEPRAZOLE MAGNESIUM [Concomitant]
     Indication: GASTROINTESTINAL DISORDER
     Route: 065
     Dates: start: 20100428, end: 20100505

REACTIONS (3)
  - DRUG LEVEL DECREASED [None]
  - NEUTROPENIA [None]
  - DRUG INTERACTION [None]
